FAERS Safety Report 4874050-5 (Version None)
Quarter: 2006Q1

REPORT INFORMATION
  Report Type: 
  Country: None (occurrence: None)
  Receive Date: 20060104
  Receipt Date: 20051214
  Transmission Date: 20060701
  Serious: Yes (Other)
  Sender: FDA-Public Use
  Company Number: 8677

PATIENT
  Sex: Male

DRUGS (2)
  1. SEPTOCAINE [Suspect]
     Indication: LOCAL ANAESTHESIA
     Dosage: 1 CARTRIDGE INJECTED
  2. SEPTOCAINE [Suspect]
     Indication: TOOTH DISORDER
     Dosage: 1 CARTRIDGE INJECTED

REACTIONS (2)
  - AGEUSIA [None]
  - PARAESTHESIA ORAL [None]
